FAERS Safety Report 26213671 (Version 1)
Quarter: 2025Q4

REPORT INFORMATION
  Report Type: Spontaneous
  Country: NG (occurrence: NG)
  Receive Date: 20251230
  Receipt Date: 20251230
  Transmission Date: 20260118
  Serious: Yes (Death, Hospitalization)
  Sender: NOVARTIS
  Company Number: NG-002147023-NVSC2025NG198154

PATIENT
  Age: 14 Year
  Sex: Female

DRUGS (15)
  1. ARTEMETHER\LUMEFANTRINE [Suspect]
     Active Substance: ARTEMETHER\LUMEFANTRINE
     Indication: Plasmodium falciparum infection
     Dosage: UNK
     Route: 048
  2. HYDROXYCHLOROQUINE [Concomitant]
     Active Substance: HYDROXYCHLOROQUINE
     Indication: Systemic lupus erythematosus
     Dosage: 300 MG, QD
     Route: 065
  3. ARTESUNATE [Concomitant]
     Active Substance: ARTESUNATE
     Indication: Plasmodium falciparum infection
     Dosage: UNK
     Route: 042
  4. ARTEMETHER [Concomitant]
     Active Substance: ARTEMETHER
     Indication: Plasmodium falciparum infection
     Dosage: UNK
     Route: 030
  5. ARTESUNATE AMODIAQUINE [Concomitant]
     Indication: Plasmodium falciparum infection
     Dosage: UNK
     Route: 048
  6. METHYLPREDNISOLONE [Concomitant]
     Active Substance: METHYLPREDNISOLONE
     Indication: Systemic lupus erythematosus
     Dosage: 450 MG, QD
     Route: 042
  7. PREDNISOLONE [Concomitant]
     Active Substance: PREDNISOLONE
     Indication: Systemic lupus erythematosus
     Dosage: 60 MG, QD
     Route: 048
  8. MYCOPHENOLATE MOFETIL [Concomitant]
     Active Substance: MYCOPHENOLATE MOFETIL
     Indication: Systemic lupus erythematosus
     Dosage: 10 MG/KG, QD
     Route: 065
  9. ITRACONAZOLE [Concomitant]
     Active Substance: ITRACONAZOLE
     Indication: Bronchopulmonary aspergillosis
     Dosage: 200 MG, Q8H
     Route: 048
  10. ITRACONAZOLE [Concomitant]
     Active Substance: ITRACONAZOLE
     Dosage: 200 MG, QD
     Route: 048
  11. FUROSEMIDE [Concomitant]
     Active Substance: FUROSEMIDE
     Indication: Cardiac failure acute
     Dosage: 2 MG/KG
     Route: 042
  12. FUROSEMIDE [Concomitant]
     Active Substance: FUROSEMIDE
     Dosage: 1 MG/KG, Q12H
     Route: 042
  13. NIFEDIPINE [Concomitant]
     Active Substance: NIFEDIPINE
     Indication: Cardiac failure acute
     Dosage: 20 MG
     Route: 060
  14. CEFTRIAXONE [Concomitant]
     Active Substance: CEFTRIAXONE
     Indication: Evidence based treatment
     Dosage: UNK
     Route: 065
  15. QUININE [Concomitant]
     Active Substance: QUININE
     Indication: Plasmodium falciparum infection
     Dosage: UNK
     Route: 048

REACTIONS (3)
  - Bronchopulmonary aspergillosis [Fatal]
  - Pulmonary haemorrhage [Fatal]
  - Cardiogenic shock [Fatal]
